FAERS Safety Report 11245723 (Version 4)
Quarter: 2016Q4

REPORT INFORMATION
  Report Type: Spontaneous
  Country: US (occurrence: US)
  Receive Date: 20150707
  Receipt Date: 20161220
  Transmission Date: 20170206
  Serious: Yes (Other)
  Sender: FDA-Public Use
  Company Number: US-BAYER-2015-367527

PATIENT
  Age: 41 Year
  Sex: Male
  Weight: 108.84 kg

DRUGS (7)
  1. VICODIN [Concomitant]
     Active Substance: ACETAMINOPHEN\HYDROCODONE BITARTRATE
     Dosage: UNK
  2. GABAPENTIN. [Concomitant]
     Active Substance: GABAPENTIN
     Indication: PAIN MANAGEMENT
     Dosage: UNK UNK, TID
     Dates: start: 2011
  3. AVELOX [Suspect]
     Active Substance: MOXIFLOXACIN HYDROCHLORIDE
     Indication: PHARYNGITIS
     Dosage: UNK
     Dates: start: 20130713
  4. AMOXICILLIN. [Concomitant]
     Active Substance: AMOXICILLIN
     Dosage: UNK
  5. PREDNISONE. [Concomitant]
     Active Substance: PREDNISONE
     Dosage: UNK
  6. BIAXIN [Concomitant]
     Active Substance: CLARITHROMYCIN
     Dosage: UNK
  7. AVELOX [Suspect]
     Active Substance: MOXIFLOXACIN HYDROCHLORIDE
     Indication: LARYNGITIS
     Dosage: 400 MG, QD
     Dates: start: 20110713, end: 20110717

REACTIONS (14)
  - Fear [None]
  - Radial nerve injury [None]
  - Pain in extremity [None]
  - Depression [None]
  - Atrophy [None]
  - Neuropathy peripheral [Not Recovered/Not Resolved]
  - Anxiety [None]
  - Quality of life decreased [None]
  - Emotional distress [None]
  - Monoparesis [Not Recovered/Not Resolved]
  - Injury [None]
  - Pain [None]
  - Brachial plexopathy [None]
  - Stress [None]

NARRATIVE: CASE EVENT DATE: 201107
